FAERS Safety Report 13998809 (Version 2)
Quarter: 2017Q4

REPORT INFORMATION
  Report Type: Not Available
  Country: US (occurrence: US)
  Receive Date: 20170921
  Receipt Date: 20171025
  Transmission Date: 20180321
  Serious: No
  Sender: FDA-Public Use
  Company Number: US-NEUROCRINE BIOSCIENCES INC.-2017NBI00619

PATIENT
  Age: 55 Year
  Sex: Male

DRUGS (9)
  1. INGREZZA [Suspect]
     Active Substance: VALBENAZINE
     Route: 048
     Dates: start: 20170719, end: 20170925
  2. MIRTAZAPINE. [Concomitant]
     Active Substance: MIRTAZAPINE
  3. OLOPATADINE. [Concomitant]
     Active Substance: OLOPATADINE
  4. INGREZZA [Suspect]
     Active Substance: VALBENAZINE
     Indication: TORTICOLLIS
     Route: 048
     Dates: start: 20170712, end: 20170718
  5. GABAPENTIN. [Concomitant]
     Active Substance: GABAPENTIN
  6. BACLOFEN. [Concomitant]
     Active Substance: BACLOFEN
  7. PROTONIX [Concomitant]
     Active Substance: PANTOPRAZOLE SODIUM
  8. CLARITIN [Concomitant]
     Active Substance: LORATADINE
  9. OLANZAPINE. [Concomitant]
     Active Substance: OLANZAPINE

REACTIONS (4)
  - Tongue movement disturbance [Not Recovered/Not Resolved]
  - Somnolence [Unknown]
  - Product use in unapproved indication [Unknown]
  - Fatigue [Unknown]

NARRATIVE: CASE EVENT DATE: 2017
